FAERS Safety Report 24985408 (Version 1)
Quarter: 2025Q1

REPORT INFORMATION
  Report Type: Spontaneous
  Country: US (occurrence: None)
  Receive Date: 20250218
  Receipt Date: 20250218
  Transmission Date: 20250408
  Serious: Yes (Death)
  Sender: FDA-CTU
  Company Number: None

PATIENT
  Age: 73 Year
  Sex: Male
  Weight: 49.4 kg

DRUGS (7)
  1. TACROLIMUS [Suspect]
     Active Substance: TACROLIMUS
     Indication: Renal transplant
     Dosage: FREQUENCY : TWICE A DAY;?
     Route: 048
     Dates: start: 20240621, end: 20250215
  2. AZATHIOPRINE [Concomitant]
     Active Substance: AZATHIOPRINE
  3. NIFEDIPINE [Concomitant]
     Active Substance: NIFEDIPINE
  4. PREDNISONE [Concomitant]
     Active Substance: PREDNISONE
  5. ATOVAQUONE [Concomitant]
     Active Substance: ATOVAQUONE
  6. POTASSIUM CHLORIDE [Concomitant]
     Active Substance: POTASSIUM CHLORIDE
  7. FAMOTIDINE [Concomitant]
     Active Substance: FAMOTIDINE

REACTIONS (1)
  - Death [None]

NARRATIVE: CASE EVENT DATE: 20250215
